FAERS Safety Report 6580635-0 (Version None)
Quarter: 2010Q1

REPORT INFORMATION
  Report Type: 
  Country: None (occurrence: None)
  Receive Date: 20100212
  Receipt Date: 20100209
  Transmission Date: 20100710
  Serious: Yes (Death)
  Sender: FDA-Public Use
  Company Number: US-CELGENEUS-163-21880-10011736

PATIENT
  Sex: Female

DRUGS (2)
  1. REVLIMID [Suspect]
     Route: 048
     Dates: start: 20091201, end: 20100114
  2. REVLIMID [Suspect]
     Route: 048
     Dates: start: 20091121, end: 20091201

REACTIONS (3)
  - CHRONIC LYMPHOCYTIC LEUKAEMIA [None]
  - MALIGNANT NEOPLASM PROGRESSION [None]
  - NEOPLASM PROGRESSION [None]
